FAERS Safety Report 8533284-9 (Version None)
Quarter: 2012Q3

REPORT INFORMATION
  Report Type: 
  Country: None (occurrence: None)
  Receive Date: 20120724
  Receipt Date: 20120720
  Transmission Date: 20120928
  Serious: Yes (Death)
  Sender: FDA-Public Use
  Company Number: PT-B.I. PHARMACEUTICALS,INC./RIDGEFIELD-2012-EU-03692PO

PATIENT
  Sex: Male
  Weight: 70 kg

DRUGS (9)
  1. METAMIZOL [Suspect]
     Dosage: 2000MG/5ML
     Route: 042
     Dates: start: 20120511, end: 20120514
  2. INDAPAMIDE [Concomitant]
     Indication: HYPERTENSION
     Dosage: 1.5 MG
     Route: 048
  3. ACETAMINOPHEN [Concomitant]
     Dosage: 3000 MG
     Route: 042
     Dates: start: 20120511, end: 20120514
  4. CELECOXIB [Suspect]
     Indication: INFLAMMATION
     Dosage: 200 MG
     Route: 048
     Dates: start: 20120515, end: 20120530
  5. TRIMETHOPRIM [Suspect]
     Indication: INFECTION PROPHYLAXIS
     Dosage: 1600MG+320MG
     Route: 048
     Dates: start: 20120515, end: 20120530
  6. PRADAXA [Suspect]
     Indication: THROMBOSIS PROPHYLAXIS
     Dosage: 75 MG
     Route: 048
     Dates: start: 20120515, end: 20120530
  7. ENOXAPARIN [Concomitant]
     Dosage: 40 MG
     Route: 058
     Dates: start: 20120511, end: 20120514
  8. TRAMADOL HYDROCHLORIDE [Concomitant]
     Dosage: STRENGTH: 100MG/2ML
     Route: 042
     Dates: start: 20120511, end: 20120514
  9. SULFAMETHOXAZOLE [Suspect]
     Indication: INFECTION PROPHYLAXIS
     Dosage: 1600MG+320MG
     Route: 048
     Dates: start: 20120515, end: 20120530

REACTIONS (9)
  - FACE OEDEMA [None]
  - OCULAR DISCOMFORT [None]
  - PRURITUS [None]
  - PYREXIA [None]
  - TOXIC EPIDERMAL NECROLYSIS [None]
  - CHILLS [None]
  - STEVENS-JOHNSON SYNDROME [None]
  - ODYNOPHAGIA [None]
  - RASH ERYTHEMATOUS [None]
